FAERS Safety Report 4629429-3 (Version None)
Quarter: 2005Q2

REPORT INFORMATION
  Report Type: 
  Country: None (occurrence: None)
  Receive Date: 20050405
  Receipt Date: 20050329
  Transmission Date: 20051028
  Serious: Yes (Hospitalization)
  Sender: FDA-Public Use
  Company Number: 2005-03-2002

PATIENT

DRUGS (2)
  1. CLARITIN [Suspect]
     Dosage: ORAL
     Route: 048
  2. ANTIFUNGAL [Concomitant]

REACTIONS (1)
  - SHOCK [None]
